FAERS Safety Report 17130492 (Version 1)
Quarter: 2019Q4

REPORT INFORMATION
  Report Type: Spontaneous
  Country: US (occurrence: US)
  Receive Date: 20191209
  Receipt Date: 20191209
  Transmission Date: 20200122
  Serious: Yes (Other)
  Sender: FDA-Public Use
  Company Number: US-SHIRE-US201939830

PATIENT
  Sex: Male

DRUGS (2)
  1. ADVATE [Suspect]
     Active Substance: ANTIHEMOPHILIC FACTOR, HUMAN RECOMBINANT
     Indication: HAEMORRHAGE
     Dosage: 1 DOSAGE FORM
     Route: 042
  2. ASPIRIN (E.C.) [Concomitant]
     Active Substance: ASPIRIN

REACTIONS (6)
  - Haemorrhage [Unknown]
  - Gait disturbance [Unknown]
  - Head injury [Unknown]
  - Myocardial infarction [Unknown]
  - Limb injury [Unknown]
  - Device occlusion [Unknown]
